FAERS Safety Report 4316106-1 (Version None)
Quarter: 2004Q1

REPORT INFORMATION
  Report Type: 
  Country: None (occurrence: None)
  Receive Date: 20040305
  Receipt Date: 20040226
  Transmission Date: 20041129
  Serious: Yes (Death, Life-Threatening, Hospitalization)
  Sender: FDA-Public Use
  Company Number: WAES 96080950

PATIENT
  Age: 3 Day
  Sex: Male

DRUGS (8)
  1. INDOCIN I.V. [Suspect]
     Indication: PATENT DUCTUS ARTERIOSUS
     Dosage: 0.1 MG/KG/DAILY
     Route: 042
     Dates: start: 19950423, end: 19950424
  2. AMPICILLIN [Concomitant]
  3. CALCIUM GLUCONATE [Concomitant]
  4. DOPAMINE HCL [Concomitant]
  5. GENTAMICINS04 [Concomitant]
  6. GLUCOSE [Concomitant]
  7. INSULIN [Concomitant]
  8. SURFACTANT, NOS [Concomitant]

REACTIONS (11)
  - ACUTE RESPIRATORY DISTRESS SYNDROME [None]
  - C-REACTIVE PROTEIN INCREASED [None]
  - GASTROINTESTINAL PERFORATION [None]
  - HAEMORRHAGE INTRACRANIAL [None]
  - HYPERKALAEMIA [None]
  - MATERNAL DRUGS AFFECTING FOETUS [None]
  - METABOLIC ACIDOSIS [None]
  - NEONATAL ASPHYXIA [None]
  - PATENT DUCTUS ARTERIOSUS [None]
  - PREMATURE BABY [None]
  - TACHYCARDIA [None]
